FAERS Safety Report 9335466 (Version 3)
Quarter: 2013Q3

REPORT INFORMATION
  Report Type: Spontaneous
  Country: IT (occurrence: IT)
  Receive Date: 20130605
  Receipt Date: 20130903
  Transmission Date: 20140515
  Serious: Yes (Death, Hospitalization)
  Sender: FDA-Public Use
  Company Number: IT-BRISTOL-MYERS SQUIBB COMPANY-18961300

PATIENT
  Age: 74 Year
  Sex: Female

DRUGS (7)
  1. ERBITUX SOLN FOR INF 5MG/ML [Suspect]
     Indication: COLON CANCER
     Route: 042
     Dates: start: 20130503, end: 20130510
  2. CAMPTO [Concomitant]
     Indication: COLON CANCER
     Dosage: CAMPTO 20MG/ML, INTRAVENOUS INFUSION
     Route: 042
     Dates: start: 20130503, end: 20130503
  3. FLUOROURACIL [Concomitant]
     Indication: COLON CANCER
     Route: 042
     Dates: start: 20130503, end: 20130503
  4. KYTRIL [Concomitant]
     Indication: PREMEDICATION
     Dosage: 1DF:3MG/3ML, INTRAVENOUS INFUSION
     Route: 042
     Dates: start: 20130510, end: 20130510
  5. DEXAMETHASONE [Concomitant]
     Indication: PREMEDICATION
     Dosage: DEXAMETHASONE PHOSPHATE 4MG/ML
     Dates: start: 20130503, end: 20130510
  6. TRIMETON [Concomitant]
     Indication: PREMEDICATION
     Dosage: TRIMETON 10MG/ML
     Dates: start: 20130503, end: 20130510
  7. ALOXI [Concomitant]
     Indication: PROPHYLAXIS OF NAUSEA AND VOMITING
     Dosage: 250 MICROGRAM
     Route: 040
     Dates: start: 20130503, end: 20130503

REACTIONS (4)
  - Atrioventricular block complete [Fatal]
  - Metabolic acidosis [Fatal]
  - Hypotension [Fatal]
  - Sinus tachycardia [Fatal]
